FAERS Safety Report 10531413 (Version 2)
Quarter: 2014Q4

REPORT INFORMATION
  Report Type: Report from Study
  Country: BR (occurrence: BR)
  Receive Date: 20141021
  Receipt Date: 20141103
  Transmission Date: 20150529
  Serious: No
  Sender: FDA-Public Use
  Company Number: PHHY2014BR137203

PATIENT
  Sex: Female
  Weight: 103 kg

DRUGS (4)
  1. METFORMIN [Concomitant]
     Active Substance: METFORMIN HYDROCHLORIDE
     Indication: PRODUCT USED FOR UNKNOWN INDICATION
     Dosage: 2 DF, QD
     Route: 048
  2. DIOVAN AMLO FIX [Suspect]
     Active Substance: AMLODIPINE\VALSARTAN
     Indication: HYPERTENSION
     Dosage: 1 DF, QD
     Route: 048
  3. ALLOPURINOL. [Concomitant]
     Active Substance: ALLOPURINOL
     Indication: PRODUCT USED FOR UNKNOWN INDICATION
     Dosage: 3 DF, QD
     Route: 048
  4. COLCHIS [Concomitant]
     Indication: BLOOD URIC ACID INCREASED
     Dosage: 1 DF, QD
     Route: 048

REACTIONS (3)
  - Blood pressure inadequately controlled [Recovered/Resolved]
  - Drug ineffective [Recovered/Resolved]
  - Blood cholesterol abnormal [Recovering/Resolving]
